FAERS Safety Report 7887988-1 (Version None)
Quarter: 2011Q4

REPORT INFORMATION
  Report Type: 
  Country: None (occurrence: None)
  Receive Date: 20111103
  Receipt Date: 20111024
  Transmission Date: 20120403
  Serious: Yes (Other)
  Sender: FDA-Public Use
  Company Number: US-JNJFOC-20111011038

PATIENT
  Sex: Female

DRUGS (3)
  1. DURAGESIC-100 [Suspect]
     Indication: PAIN
     Route: 062
     Dates: start: 20070101
  2. MORPHINE [Suspect]
     Indication: PAIN
     Route: 048
  3. FENTANYL-100 [Suspect]
     Indication: PAIN
     Route: 062

REACTIONS (5)
  - FEELING HOT [None]
  - MALAISE [None]
  - CHEST DISCOMFORT [None]
  - DRUG EFFECT INCREASED [None]
  - DYSPNOEA [None]
